FAERS Safety Report 7954595-1 (Version None)
Quarter: 2011Q4

REPORT INFORMATION
  Report Type: 
  Country: None (occurrence: None)
  Receive Date: 20111202
  Receipt Date: 20111124
  Transmission Date: 20120403
  Serious: Yes (Hospitalization)
  Sender: FDA-Public Use
  Company Number: PHHY2011JP103661

PATIENT
  Age: 61 Year
  Sex: Female

DRUGS (6)
  1. PREDNISOLONE [Concomitant]
     Dosage: UNK UKN, UNK
  2. MIZORIBINE [Suspect]
     Dosage: UNK UKN, UNK
  3. CYCLOSPORINE [Suspect]
     Indication: RHEUMATOID ARTHRITIS
     Dosage: UNK UKN, UNK
  4. METHOTREXATE [Suspect]
     Dosage: UNK UKN, UNK
  5. BUCILLAMINE [Suspect]
     Dosage: UNK UKN, UNK
  6. AZATHIOPRINE [Suspect]
     Dosage: UNK UKN, UNK

REACTIONS (2)
  - RHEUMATOID VASCULITIS [None]
  - THERAPEUTIC RESPONSE DECREASED [None]
